FAERS Safety Report 5340547-7 (Version None)
Quarter: 2007Q2

REPORT INFORMATION
  Report Type: 
  Country: None (occurrence: None)
  Receive Date: 20070531
  Receipt Date: 20070522
  Transmission Date: 20071010
  Serious: Yes (Other)
  Sender: FDA-Public Use
  Company Number: HU-PFIZER INC-2007029771

PATIENT
  Sex: Male
  Weight: 65 kg

DRUGS (6)
  1. VARENICLINE [Suspect]
     Indication: SMOKING CESSATION THERAPY
     Route: 048
     Dates: start: 20070217, end: 20070512
  2. CORINFAR [Concomitant]
     Route: 048
  3. ATORVASTATIN [Concomitant]
     Route: 048
  4. QUAMATEL [Concomitant]
     Route: 048
  5. CONCOR [Concomitant]
     Route: 048
  6. CO-RENITEC [Concomitant]
     Route: 048

REACTIONS (3)
  - FATIGUE [None]
  - HYPERHIDROSIS [None]
  - PNEUMONIA VIRAL [None]
